FAERS Safety Report 19091859 (Version 1)
Quarter: 2021Q2

REPORT INFORMATION
  Report Type: Spontaneous
  Country: NL (occurrence: NL)
  Receive Date: 20210405
  Receipt Date: 20210405
  Transmission Date: 20210717
  Serious: Yes (Death)
  Sender: FDA-Public Use
  Company Number: NL-PFIZER INC-2021311265

PATIENT
  Age: 60 Year
  Sex: Female
  Weight: 43 kg

DRUGS (2)
  1. VORICONAZOLE. [Suspect]
     Active Substance: VORICONAZOLE
     Dosage: 200MG, ONCE DAILY
     Dates: start: 20210223, end: 20210224
  2. VORICONAZOLE. [Suspect]
     Active Substance: VORICONAZOLE
     Indication: BRONCHOPULMONARY ASPERGILLOSIS
     Dosage: 200MG, TWICE DAILY
     Dates: start: 20210217

REACTIONS (10)
  - Abdominal pain [Fatal]
  - Nausea [Fatal]
  - Diarrhoea [Fatal]
  - Speech disorder [Fatal]
  - Intestinal ischaemia [Fatal]
  - Toxicity to various agents [Fatal]
  - Bradykinesia [Fatal]
  - Hypoaesthesia [Fatal]
  - Off label use [Unknown]
  - Vomiting [Fatal]

NARRATIVE: CASE EVENT DATE: 20210221
